FAERS Safety Report 18920867 (Version 1)
Quarter: 2021Q1

REPORT INFORMATION
  Report Type: Spontaneous
  Country: US (occurrence: US)
  Receive Date: 20210222
  Receipt Date: 20210222
  Transmission Date: 20210420
  Serious: Yes (Other)
  Sender: FDA-Public Use
  Company Number: US-ALLERGAN-2005080US

PATIENT
  Age: 73 Year
  Sex: Male

DRUGS (8)
  1. OZURDEX [Suspect]
     Active Substance: DEXAMETHASONE
     Indication: RETINAL VEIN OCCLUSION
     Dosage: 0.7 MG, SINGLE
     Route: 031
     Dates: start: 20200107, end: 20200107
  2. LEVOTHYROXINE. [Concomitant]
     Active Substance: LEVOTHYROXINE
  3. ASA [Concomitant]
     Active Substance: ASPIRIN
  4. METOPROLOL. [Concomitant]
     Active Substance: METOPROLOL
  5. VITAMIN D [Concomitant]
     Active Substance: VITAMIN D NOS
  6. LIPITOR [Concomitant]
     Active Substance: ATORVASTATIN CALCIUM
  7. OZURDEX [Suspect]
     Active Substance: DEXAMETHASONE
     Indication: MACULAR OEDEMA
  8. LISINOPRIL. [Concomitant]
     Active Substance: LISINOPRIL

REACTIONS (2)
  - Retinal detachment [Unknown]
  - Endophthalmitis [Unknown]

NARRATIVE: CASE EVENT DATE: 20200110
